FAERS Safety Report 13516832 (Version 2)
Quarter: 2017Q2

REPORT INFORMATION
  Report Type: Spontaneous
  Country: US (occurrence: US)
  Receive Date: 20170505
  Receipt Date: 20170511
  Transmission Date: 20170830
  Serious: No
  Sender: FDA-Public Use
  Company Number: US-PFIZER INC-2017188438

PATIENT
  Age: 48 Year
  Sex: Male
  Weight: 114.4 kg

DRUGS (18)
  1. IBRANCE [Suspect]
     Active Substance: PALBOCICLIB
     Indication: MALIGNANT URINARY TRACT NEOPLASM
     Dosage: 125 MG, DAILY
     Route: 048
     Dates: start: 20170405
  2. IBRANCE [Suspect]
     Active Substance: PALBOCICLIB
     Indication: BLADDER TRANSITIONAL CELL CARCINOMA STAGE IV
  3. ATIVAN [Concomitant]
     Active Substance: LORAZEPAM
     Dosage: 0.5 MG, 2X/DAY
  4. PANCREATIN [Concomitant]
     Active Substance: PANCRELIPASE
     Dosage: UNK UNK, DAILY
     Route: 048
  5. MIRALAX [Concomitant]
     Active Substance: POLYETHYLENE GLYCOL 3350
     Dosage: UNK
     Route: 048
  6. CANNABIS SATIVA OIL [Concomitant]
     Active Substance: CANNABIS SATIVA SUBSP. INDICA TOP
     Dosage: UNK
  7. VITAMIN B COMPLEX [Concomitant]
     Active Substance: CYANOCOBALAMIN\DEXPANTHENOL\NIACINAMIDE\PYRIDOXINE HYDROCHLORIDE\RIBOFLAVIN 5^-PHOSPHATE SODIUM\THIAMINE HYDROCHLORIDE\VITAMIN B COMPLEX
     Dosage: UNK
     Route: 048
  8. SODIUM CHLORIDE. [Concomitant]
     Active Substance: SODIUM CHLORIDE
     Dosage: 1000 ML, UNK
     Route: 042
     Dates: end: 20170118
  9. ZOFRAN [Concomitant]
     Active Substance: ONDANSETRON HYDROCHLORIDE
     Indication: NAUSEA
     Dosage: 8 MG, AS NEEDED (EVERY 8 HOURS)
     Route: 048
  10. OXYCODONE [Concomitant]
     Active Substance: OXYCODONE
     Dosage: 60 MG, 2X/DAY (EVERY 12 HOURS)
     Route: 048
  11. OXYCONTIN [Concomitant]
     Active Substance: OXYCODONE HYDROCHLORIDE
     Dosage: 80 MG, 3X/DAY (EVERY 8 HOURS)
     Route: 048
  12. TYLENOL [Concomitant]
     Active Substance: ACETAMINOPHEN
     Dosage: 500 MG, 1X/DAY
     Route: 048
  13. THERAGRAN [Concomitant]
     Active Substance: VITAMINS
     Dosage: 1 DF, DAILY
     Route: 048
  14. ROXICODONE [Concomitant]
     Active Substance: OXYCODONE HYDROCHLORIDE
     Indication: PAIN
     Dosage: 15 MG, AS NEEDED ((EVERY 4 HOURS)
     Route: 048
  15. TYLENOL [Concomitant]
     Active Substance: ACETAMINOPHEN
     Dosage: 1500 MG, 1X/DAY  (TAKES 500MG AT 7PM AND 1000MG AT 3 AM)
     Route: 048
  16. COLACE [Concomitant]
     Active Substance: DOCUSATE SODIUM
     Dosage: UNK UNK, AS NEEDED (2 TIMES A DAY)
     Route: 048
  17. VITAMIN C [Concomitant]
     Active Substance: ASCORBIC ACID
     Dosage: 1000 MG, DAILY [2 DAILY]
     Route: 048
  18. COMPAZINE [Concomitant]
     Active Substance: PROCHLORPERAZINE MALEATE
     Dosage: 10 MG, AS NEEDED (EVERY 6 HOURS)
     Route: 048

REACTIONS (14)
  - Blood creatinine decreased [Unknown]
  - Blood albumin decreased [Unknown]
  - White blood cell count increased [Unknown]
  - Red blood cell count decreased [Unknown]
  - Red cell distribution width increased [Unknown]
  - Mean cell volume decreased [Unknown]
  - Blood glucose increased [Unknown]
  - Haematocrit decreased [Unknown]
  - Product use in unapproved indication [Unknown]
  - Blood chloride decreased [Unknown]
  - Haemoglobin decreased [Unknown]
  - Mean cell haemoglobin decreased [Unknown]
  - Mean cell haemoglobin concentration decreased [Unknown]
  - Platelet count increased [Unknown]

NARRATIVE: CASE EVENT DATE: 20170405
